FAERS Safety Report 22311031 (Version 1)
Quarter: 2023Q2

REPORT INFORMATION
  Report Type: Spontaneous
  Country: US (occurrence: US)
  Receive Date: 20230511
  Receipt Date: 20230511
  Transmission Date: 20230722
  Serious: No
  Sender: FDA-Public Use
  Company Number: US-PFIZER INC-202300182954

PATIENT
  Age: 43 Year
  Sex: Female

DRUGS (1)
  1. IBRANCE [Suspect]
     Active Substance: PALBOCICLIB
     Dosage: 100 MG, 1 TABLET DAILY FOR 3 WEEKS ON, 1 WEEK OFF
     Route: 048
     Dates: start: 202205

REACTIONS (2)
  - White blood cell count decreased [Unknown]
  - Illness [Unknown]
